FAERS Safety Report 4686062-5 (Version None)
Quarter: 2005Q2

REPORT INFORMATION
  Report Type: 
  Country: None (occurrence: None)
  Receive Date: 20050609
  Receipt Date: 20050311
  Transmission Date: 20051028
  Serious: Yes (Hospitalization, Other)
  Sender: FDA-Public Use
  Company Number: PHHO2005US04285

PATIENT
  Age: 72 Year
  Sex: Female
  Weight: 58 kg

DRUGS (1)
  1. TEGASEROD [Suspect]
     Indication: DYSPEPSIA
     Dosage: 6 MG, BID
     Route: 048
     Dates: start: 20041020, end: 20050310

REACTIONS (11)
  - ATRIAL FIBRILLATION [None]
  - CHEST DISCOMFORT [None]
  - CHEST PAIN [None]
  - COSTOCHONDRITIS [None]
  - DIARRHOEA [None]
  - DIZZINESS [None]
  - DRY SKIN [None]
  - MITRAL VALVE INCOMPETENCE [None]
  - ORTHOSTATIC HYPOTENSION [None]
  - RASH [None]
  - VOMITING [None]
